FAERS Safety Report 4809810-X (Version None)
Quarter: 2005Q4

REPORT INFORMATION
  Report Type: 
  Country: None (occurrence: None)
  Receive Date: 20051024
  Receipt Date: 20051024
  Transmission Date: 20060501
  Serious: Yes (Hospitalization)
  Sender: FDA-Public Use
  Company Number: None

PATIENT
  Sex: Male
  Weight: 108.5 kg

DRUGS (14)
  1. DOXORUBICIN [Suspect]
     Indication: HODGKIN'S DISEASE
     Dosage: SEE IMAGE
     Route: 042
     Dates: start: 20050214, end: 20050214
  2. DOXORUBICIN [Suspect]
     Indication: HODGKIN'S DISEASE
     Dosage: SEE IMAGE
     Route: 042
     Dates: start: 20050927
  3. VINBLASTINE [Suspect]
     Dosage: SEE IMAGE
     Route: 042
     Dates: start: 20050214, end: 20050214
  4. VINBLASTINE [Suspect]
     Dosage: SEE IMAGE
     Route: 042
     Dates: start: 20050927
  5. VINCRISTINE [Suspect]
     Dosage: SEE IMAGE
     Route: 042
     Dates: start: 20050221, end: 20050221
  6. VINCRISTINE [Suspect]
     Dosage: SEE IMAGE
     Route: 042
     Dates: start: 20050927
  7. BLEOMYCIN [Suspect]
     Dosage: SEE IMAGE
     Route: 042
     Dates: start: 20050110, end: 20050221
  8. BLEOMYCIN [Suspect]
     Dosage: SEE IMAGE
     Route: 042
     Dates: start: 20050927
  9. CYCLOPHOSPHAMIDE [Suspect]
     Dosage: SEE IMAGE
     Route: 042
     Dates: start: 20050131, end: 20050131
  10. CYCLOPHOSPHAMIDE [Suspect]
     Dosage: SEE IMAGE
     Route: 042
     Dates: start: 20050927
  11. VP-16 [Suspect]
     Dosage: SEE IMAGE
     Route: 042
     Dates: start: 20050117, end: 20050215
  12. VP-16 [Suspect]
     Dosage: SEE IMAGE
     Route: 042
     Dates: start: 20050927
  13. PREDNISONE [Suspect]
     Dosage: SEE IMAGE
     Route: 048
     Dates: start: 20041203, end: 20050220
  14. PREDNISONE [Suspect]
     Dosage: SEE IMAGE
     Route: 048
     Dates: start: 20050927

REACTIONS (5)
  - CARDIAC FAILURE [None]
  - CARDIOMYOPATHY [None]
  - EJECTION FRACTION DECREASED [None]
  - GENERALISED OEDEMA [None]
  - LYMPHADENOPATHY [None]
